FAERS Safety Report 9025946 (Version 1)
Quarter: 2013Q1

REPORT INFORMATION
  Report Type: Spontaneous
  Country: US (occurrence: None)
  Receive Date: 20130104
  Receipt Date: 20130104
  Transmission Date: 20140127
  Serious: Yes (Other)
  Sender: FDA-Public Use
  Company Number: UCM201212-000091

PATIENT
  Age: 57 Year
  Sex: Female

DRUGS (4)
  1. CETIRIZINE HCL [Suspect]
     Indication: URTICARIA
  2. CORTICOSTEROIDS [Concomitant]
  3. FEXOFENADINE [Concomitant]
  4. RANITIDINE [Concomitant]

REACTIONS (6)
  - Hepatitis acute [None]
  - Fatigue [None]
  - Abdominal pain [None]
  - Diarrhoea [None]
  - Headache [None]
  - Hepatotoxicity [None]
